FAERS Safety Report 5044255-1 (Version None)
Quarter: 2006Q3

REPORT INFORMATION
  Report Type: 
  Country: None (occurrence: None)
  Receive Date: 20060706
  Receipt Date: 20060508
  Transmission Date: 20061208
  Serious: Yes (Other)
  Sender: FDA-Public Use
  Company Number: DE-BRISTOL-MYERS SQUIBB COMPANY-13374822

PATIENT
  Age: 69 Year
  Sex: Female

DRUGS (1)
  1. AMPHO-MORONAL LOZENGE [Suspect]
     Indication: ORAL CANDIDIASIS
     Dates: start: 20060428, end: 20060508

REACTIONS (1)
  - TOOTH DISCOLOURATION [None]
